FAERS Safety Report 6600672-7 (Version None)
Quarter: 2010Q1

REPORT INFORMATION
  Report Type: 
  Country: None (occurrence: None)
  Receive Date: 20100223
  Receipt Date: 20100223
  Transmission Date: 20100710
  Serious: Yes (Other)
  Sender: FDA-Public Use
  Company Number: None

PATIENT
  Age: 42 Year
  Sex: Female
  Weight: 58.514 kg

DRUGS (1)
  1. CIPROFLOXACIN HCL [Suspect]
     Indication: CYSTITIS
     Dosage: 500 MG ONCE PO ONE DOSE
     Route: 048
     Dates: start: 20100215, end: 20100215

REACTIONS (12)
  - ASTHMA [None]
  - COUGH [None]
  - DRUG INEFFECTIVE [None]
  - EAR PRURITUS [None]
  - EYE PRURITUS [None]
  - NERVOUSNESS [None]
  - PALPITATIONS [None]
  - PARAESTHESIA [None]
  - PRURITUS GENERALISED [None]
  - RASH MACULAR [None]
  - SKIN BURNING SENSATION [None]
  - THROAT IRRITATION [None]
